FAERS Safety Report 10799024 (Version 1)
Quarter: 2015Q1

REPORT INFORMATION
  Report Type: Spontaneous
  Country: US (occurrence: US)
  Receive Date: 20150216
  Receipt Date: 20150216
  Transmission Date: 20150721
  Serious: No
  Sender: FDA-Public Use
  Company Number: US-ALLERGAN-1404312US

PATIENT
  Age: 49 Year
  Sex: Female

DRUGS (2)
  1. VIVELLE [Concomitant]
     Active Substance: ESTRADIOL
     Indication: MENOPAUSE
     Dosage: UNK
     Dates: start: 2008, end: 20140302
  2. RESTASIS [Suspect]
     Active Substance: CYCLOSPORINE
     Indication: DRY EYE
     Dosage: 2 GTT, BID
     Route: 047
     Dates: start: 20140201, end: 20140302

REACTIONS (4)
  - Dizziness [Unknown]
  - Nausea [Unknown]
  - Vertigo [Unknown]
  - Hypertension [Unknown]

NARRATIVE: CASE EVENT DATE: 20140215
